FAERS Safety Report 22632132 (Version 1)
Quarter: 2023Q2

REPORT INFORMATION
  Report Type: Spontaneous
  Country: US (occurrence: US)
  Receive Date: 20230623
  Receipt Date: 20230623
  Transmission Date: 20230722
  Serious: Yes (Other)
  Sender: FDA-Public Use
  Company Number: US-002147023-NVSC2023US138122

PATIENT

DRUGS (2)
  1. TRAMETINIB [Suspect]
     Active Substance: TRAMETINIB
     Indication: Metastatic neoplasm
     Dosage: 1 MG, CYCLIC
     Route: 048
  2. NERATINIB [Suspect]
     Active Substance: NERATINIB
     Indication: Metastatic neoplasm
     Dosage: 160 MG, CYCLIC (CONTINUOUS 28-DAY CYCLE)
     Route: 048

REACTIONS (3)
  - Metastatic neoplasm [Unknown]
  - Malignant neoplasm progression [Unknown]
  - Product use issue [Unknown]
